FAERS Safety Report 12297160 (Version 2)
Quarter: 2016Q4

REPORT INFORMATION
  Report Type: Spontaneous
  Country: US (occurrence: US)
  Receive Date: 20160422
  Receipt Date: 20161108
  Transmission Date: 20170207
  Serious: Yes (Hospitalization, Other)
  Sender: FDA-Public Use
  Company Number: US-ASTELLAS-2016US015487

PATIENT
  Age: 77 Year
  Sex: Male

DRUGS (3)
  1. XTANDI [Suspect]
     Active Substance: ENZALUTAMIDE
     Indication: PROSTATE CANCER METASTATIC
     Route: 048
     Dates: start: 20150924
  2. XTANDI [Suspect]
     Active Substance: ENZALUTAMIDE
     Dosage: 80 MG (TWO 40 MG CAPSULE), TWICE DAILY
     Route: 048
     Dates: start: 201605
  3. XTANDI [Suspect]
     Active Substance: ENZALUTAMIDE
     Dosage: 80 MG (TWO 40 MG CAPSULE), TWICE DAILY
     Route: 048
     Dates: start: 20151030, end: 201603

REACTIONS (10)
  - Speech disorder [Unknown]
  - Pain [Unknown]
  - Loss of consciousness [Unknown]
  - Prostatic specific antigen increased [Unknown]
  - Inappropriate schedule of drug administration [Unknown]
  - Appendicitis perforated [Unknown]
  - General physical condition abnormal [Unknown]
  - Abasia [Unknown]
  - Memory impairment [Unknown]
  - Sepsis [Unknown]

NARRATIVE: CASE EVENT DATE: 20160312
